FAERS Safety Report 14165475 (Version 8)
Quarter: 2019Q1

REPORT INFORMATION
  Report Type: Report from Study
  Country: JP (occurrence: JP)
  Receive Date: 20171107
  Receipt Date: 20190301
  Transmission Date: 20190417
  Serious: Yes (Hospitalization, Other)
  Sender: FDA-Public Use
  Company Number: JP-AEGERION PHARMACEUTICAL, INC-AEGR003110

PATIENT

DRUGS (30)
  1. JUXTAPID [Suspect]
     Active Substance: LOMITAPIDE MESYLATE
     Indication: TYPE IIA HYPERLIPIDAEMIA
     Dosage: 5 MG, QD, THE PATIENT TOOK JUXTAPID 2 HOURS AFTER DINNER
     Route: 048
     Dates: start: 20170113
  2. JUXTAPID [Suspect]
     Active Substance: LOMITAPIDE MESYLATE
     Dosage: UNK
  3. WARFARIN [Suspect]
     Active Substance: WARFARIN
     Indication: THROMBOSIS PROPHYLAXIS
     Route: 048
  4. WARFARIN [Suspect]
     Active Substance: WARFARIN
     Indication: THROMBOSIS PROPHYLAXIS
     Route: 048
  5. ATORVASTATIN [Concomitant]
     Active Substance: ATORVASTATIN
     Route: 048
  6. ARTIST [Concomitant]
     Active Substance: CARVEDILOL
     Indication: CARDIAC FAILURE
     Dosage: 2.5 MG, BID
     Route: 048
  7. ZETIA [Concomitant]
     Active Substance: EZETIMIBE
     Route: 048
  8. ATORVASTATIN [Concomitant]
     Active Substance: ATORVASTATIN
     Route: 048
  9. TAKEPRON [Concomitant]
     Active Substance: LANSOPRAZOLE
     Indication: PROPHYLAXIS
     Dosage: 15 MG, QD
     Route: 048
  10. PROBUCOL [Concomitant]
     Active Substance: PROBUCOL
     Route: 048
  11. BAYASPIRIN [Concomitant]
     Active Substance: ASPIRIN
     Indication: PROPHYLAXIS
     Dosage: 100 MG, QD
     Route: 048
  12. SIGMART [Concomitant]
     Active Substance: NICORANDIL
     Indication: PROPHYLAXIS
     Dosage: 5 MG, QD
     Route: 048
  13. ATORVASTATIN [Concomitant]
     Active Substance: ATORVASTATIN
     Indication: HYPERCHOLESTEROLAEMIA
     Dosage: 20 MG, QD
     Route: 048
  14. PROBUCOL [Concomitant]
     Active Substance: PROBUCOL
     Route: 048
  15. BAYASPIRIN [Concomitant]
     Active Substance: ASPIRIN
     Route: 048
  16. SIGMART [Concomitant]
     Active Substance: NICORANDIL
     Route: 048
  17. ARTIST [Concomitant]
     Active Substance: CARVEDILOL
     Route: 048
  18. TAKEPRON [Concomitant]
     Active Substance: LANSOPRAZOLE
     Route: 048
  19. ARTIST [Concomitant]
     Active Substance: CARVEDILOL
     Route: 048
  20. PROBUCOL [Concomitant]
     Active Substance: PROBUCOL
     Indication: HYPERCHOLESTEROLAEMIA
     Dosage: 500 MG, BID
     Route: 048
  21. BAYASPIRIN [Concomitant]
     Active Substance: ASPIRIN
     Route: 048
  22. TAKEPRON [Concomitant]
     Active Substance: LANSOPRAZOLE
     Route: 048
  23. ZETIA [Concomitant]
     Active Substance: EZETIMIBE
     Indication: HYPERCHOLESTEROLAEMIA
     Route: 048
  24. PROBUCOL [Concomitant]
     Active Substance: PROBUCOL
     Route: 048
  25. BAYASPIRIN [Concomitant]
     Active Substance: ASPIRIN
     Route: 048
  26. TAKEPRON [Concomitant]
     Active Substance: LANSOPRAZOLE
     Route: 048
  27. ATORVASTATIN [Concomitant]
     Active Substance: ATORVASTATIN
     Route: 048
  28. SIGMART [Concomitant]
     Active Substance: NICORANDIL
     Route: 048
  29. SIGMART [Concomitant]
     Active Substance: NICORANDIL
     Route: 048
  30. ARTIST [Concomitant]
     Active Substance: CARVEDILOL
     Route: 048

REACTIONS (3)
  - International normalised ratio increased [Recovered/Resolved]
  - Diarrhoea [Recovered/Resolved]
  - Diarrhoea [Recovered/Resolved]

NARRATIVE: CASE EVENT DATE: 20170326
